FAERS Safety Report 22231984 (Version 1)
Quarter: 2023Q2

REPORT INFORMATION
  Report Type: Spontaneous
  Country: US (occurrence: None)
  Receive Date: 20230420
  Receipt Date: 20230420
  Transmission Date: 20230721
  Serious: No
  Sender: FDA-Public Use
  Company Number: US-ROCHE-3292527

PATIENT
  Sex: Male

DRUGS (1)
  1. ESBRIET [Suspect]
     Active Substance: PIRFENIDONE
     Indication: Interstitial lung disease
     Dosage: TAKE 1 TABLET 3 TIMES DAILY I WEEK, TAKE 2 TABLETS 3 TIMES A DAY 1 WEEK, THEN 3 TABLETS 3 TIMES DAIL
     Route: 048
     Dates: start: 20230215

REACTIONS (9)
  - Productive cough [Unknown]
  - Wheezing [Unknown]
  - Depression [Unknown]
  - Fatigue [Unknown]
  - Insomnia [Unknown]
  - Fall [Unknown]
  - Balance disorder [Unknown]
  - Limb discomfort [Unknown]
  - Off label use [Unknown]
